FAERS Safety Report 24952454 (Version 2)
Quarter: 2025Q1

REPORT INFORMATION
  Report Type: Spontaneous
  Country: US (occurrence: US)
  Receive Date: 20250210
  Receipt Date: 20250312
  Transmission Date: 20250408
  Serious: Yes (Disabling, Other)
  Sender: AMGEN
  Company Number: US-AMGEN-USASP2025022599

PATIENT
  Age: 80 Year
  Sex: Female
  Weight: 54 kg

DRUGS (18)
  1. TEPEZZA [Suspect]
     Active Substance: TEPROTUMUMAB-TRBW
     Indication: Endocrine ophthalmopathy
     Route: 040
     Dates: start: 20211213
  2. TEPEZZA [Suspect]
     Active Substance: TEPROTUMUMAB-TRBW
     Indication: Graves^ disease
     Dosage: 1120 MILLIGRAM, (SECOND INFUSION)
     Route: 040
     Dates: start: 20220110
  3. TEPEZZA [Suspect]
     Active Substance: TEPROTUMUMAB-TRBW
     Dosage: 1120 MILLIGRAM, (THIRD INFUSION)
     Route: 040
     Dates: start: 20220131
  4. TEPEZZA [Suspect]
     Active Substance: TEPROTUMUMAB-TRBW
     Dosage: 1100 MILLIGRAM, (FOURTH INFUSION)
     Route: 040
     Dates: start: 20220221
  5. TEPEZZA [Suspect]
     Active Substance: TEPROTUMUMAB-TRBW
     Dosage: 1180 MILLIGRAM, (FIFTH INFUSION)
     Route: 040
     Dates: start: 20220314
  6. TEPEZZA [Suspect]
     Active Substance: TEPROTUMUMAB-TRBW
     Dosage: 1070 MILLIGRAM, (SIXTH INFUSION)
     Route: 040
     Dates: start: 20220404
  7. PROLIA [Suspect]
     Active Substance: DENOSUMAB
     Indication: Product used for unknown indication
     Dosage: 60 MILLIGRAM PER MILLILITRE, Q6MO
     Route: 058
  8. SODIUM CHLORIDE [Concomitant]
     Active Substance: SODIUM CHLORIDE
     Route: 065
  9. ARTIFICIAL TEAR [Concomitant]
     Active Substance: LANOLIN\MINERAL OIL\PETROLATUM
     Dosage: UNK UNK, TID
     Route: 047
     Dates: start: 20151218
  10. ARTIFICIAL TEAR [Concomitant]
     Active Substance: LANOLIN\MINERAL OIL\PETROLATUM
     Dosage: UNK UNK, QID
     Route: 047
  11. COVID-19 vaccine [Concomitant]
     Route: 065
  12. ERYTHROMYCIN [Concomitant]
     Active Substance: ERYTHROMYCIN
     Route: 047
  13. CRESTOR [Concomitant]
     Active Substance: ROSUVASTATIN CALCIUM
     Dosage: 40 MILLIGRAM, QD
     Route: 048
  14. NABUMETONE [Concomitant]
     Active Substance: NABUMETONE
     Route: 065
  15. PHENYLEPHRINE [Concomitant]
     Active Substance: PHENYLEPHRINE
     Route: 065
  16. TROPICAMIDE [Concomitant]
     Active Substance: TROPICAMIDE
     Route: 065
  17. MEDROL [Concomitant]
     Active Substance: METHYLPREDNISOLONE
     Route: 065
  18. LEVOTHYROXINE [Concomitant]
     Active Substance: LEVOTHYROXINE
     Dosage: 88 MICROGRAM, QD
     Route: 048

REACTIONS (21)
  - Deafness neurosensory [Not Recovered/Not Resolved]
  - Endocrine ophthalmopathy [Unknown]
  - Graves^ disease [Unknown]
  - Hypothyroidism [Unknown]
  - Pain [Unknown]
  - Emotional distress [Unknown]
  - Anxiety [Unknown]
  - Discomfort [Unknown]
  - Product use complaint [Unknown]
  - Rhinitis [Unknown]
  - Neck pain [Unknown]
  - Hyperlipidaemia [Unknown]
  - Ear pain [Unknown]
  - Upper-airway cough syndrome [Unknown]
  - Cerumen impaction [Unknown]
  - Nasal septum deviation [Unknown]
  - Blood pressure increased [Unknown]
  - Ear discomfort [Unknown]
  - Tinnitus [Not Recovered/Not Resolved]
  - Muscle spasms [Unknown]
  - Eustachian tube disorder [Unknown]

NARRATIVE: CASE EVENT DATE: 20220131
